FAERS Safety Report 15310645 (Version 6)
Quarter: 2018Q4

REPORT INFORMATION
  Report Type: Report from Study
  Country: BR (occurrence: BR)
  Receive Date: 20180823
  Receipt Date: 20181226
  Transmission Date: 20190204
  Serious: Yes (Other)
  Sender: FDA-Public Use
  Company Number: PHHY2018BR078982

PATIENT
  Age: 71 Year
  Sex: Male
  Weight: 49.9 kg

DRUGS (11)
  1. COSENTYX [Suspect]
     Active Substance: SECUKINUMAB
     Indication: PSORIATIC ARTHROPATHY
     Dosage: 150 MG, QW
     Route: 058
     Dates: start: 20180503
  2. RIVOTRIL [Concomitant]
     Active Substance: CLONAZEPAM
     Indication: BLOOD PRESSURE ABNORMAL
  3. COSENTYX [Suspect]
     Active Substance: SECUKINUMAB
     Dosage: 300 MG, QW
     Route: 058
     Dates: start: 20180517
  4. COSENTYX [Suspect]
     Active Substance: SECUKINUMAB
     Dosage: 300 MG, QW
     Route: 058
     Dates: start: 20180524, end: 20180530
  5. COSENTYX [Suspect]
     Active Substance: SECUKINUMAB
     Dosage: UNK
     Route: 058
     Dates: start: 201809
  6. ENALAPRIL [Concomitant]
     Active Substance: ENALAPRIL
     Indication: BLOOD PRESSURE ABNORMAL
  7. COSENTYX [Suspect]
     Active Substance: SECUKINUMAB
     Dosage: 300 MG, UNK
     Route: 058
     Dates: start: 20181204
  8. ENALAPRIL [Concomitant]
     Active Substance: ENALAPRIL
     Indication: INSOMNIA
     Dosage: UNK
     Route: 048
  9. RIVOTRIL [Concomitant]
     Active Substance: CLONAZEPAM
     Indication: INSOMNIA
     Dosage: UNK
     Route: 048
  10. COSENTYX [Suspect]
     Active Substance: SECUKINUMAB
     Indication: PSORIASIS
     Dosage: 300 MG, QW
     Route: 058
     Dates: start: 20180510
  11. COSENTYX [Suspect]
     Active Substance: SECUKINUMAB
     Dosage: 300 MG, QW
     Route: 058
     Dates: end: 20180627

REACTIONS (22)
  - Saliva altered [Unknown]
  - Drug effect incomplete [Not Recovered/Not Resolved]
  - Nervousness [Not Recovered/Not Resolved]
  - Joint injury [Unknown]
  - Dyspnoea [Unknown]
  - Dysphemia [Not Recovered/Not Resolved]
  - Malaise [Unknown]
  - Head injury [Recovered/Resolved]
  - Dizziness [Unknown]
  - Asthenia [Not Recovered/Not Resolved]
  - Aphonia [Recovering/Resolving]
  - Body height decreased [Not Recovered/Not Resolved]
  - Skin injury [Recovered/Resolved]
  - Fall [Recovered/Resolved]
  - Anxiety [Not Recovered/Not Resolved]
  - Psoriasis [Not Recovered/Not Resolved]
  - Haemorrhage [Unknown]
  - Shock [Recovering/Resolving]
  - Limb injury [Recovering/Resolving]
  - Memory impairment [Not Recovered/Not Resolved]
  - Weight decreased [Not Recovered/Not Resolved]
  - Nasal congestion [Unknown]

NARRATIVE: CASE EVENT DATE: 201806
